FAERS Safety Report 4755827-3 (Version None)
Quarter: 2005Q3

REPORT INFORMATION
  Report Type: 
  Country: None (occurrence: None)
  Receive Date: 20050830
  Receipt Date: 20050411
  Transmission Date: 20060218
  Serious: Yes (Other)
  Sender: FDA-Public Use
  Company Number: US-BRISTOL-MYERS SQUIBB COMPANY-12928776

PATIENT
  Age: 48 Year
  Sex: Male
  Weight: 70 kg

DRUGS (5)
  1. ERBITUX [Suspect]
     Indication: COLORECTAL CANCER METASTATIC
     Dosage: LOADING DOSE OF 715 MG WAS TO BE INFUSED.
     Route: 042
     Dates: start: 20050406, end: 20050406
  2. BENADRYL [Concomitant]
     Indication: PREMEDICATION
     Route: 042
     Dates: start: 20050406, end: 20050406
  3. AVASTIN [Concomitant]
     Dosage: ADMINISTERED ONE HOUR PRIOR TO CETUXIMAB INFUSION.
     Dates: start: 20050406, end: 20050406
  4. LEUCOVORIN [Concomitant]
     Dosage: ADMINISTERED ONE HOUR PRIOR TO CETUXIMAB INFUSION.
     Route: 042
     Dates: start: 20050406, end: 20050406
  5. OXALIPLATIN [Concomitant]
     Dosage: ADMINISTERED ONE HOUR PRIOR TO CETUXIMAB INFUSION.
     Route: 042
     Dates: start: 20050406, end: 20050406

REACTIONS (1)
  - HYPERSENSITIVITY [None]
